FAERS Safety Report 24043110 (Version 3)
Quarter: 2024Q4

REPORT INFORMATION
  Report Type: Report from Study
  Country: US (occurrence: US)
  Receive Date: 20240702
  Receipt Date: 20241008
  Transmission Date: 20250114
  Serious: Yes (Other)
  Sender: MERCK
  Company Number: US-009507513-2406USA005491

PATIENT
  Age: 25 Year
  Sex: Female

DRUGS (6)
  1. SOTATERCEPT [Suspect]
     Active Substance: SOTATERCEPT
     Indication: Pulmonary arterial hypertension
     Dosage: 1.2 MILLILITER, Q3W. STRENGTH 60 MG
     Route: 058
     Dates: start: 202405
  2. WINREVAIR [Suspect]
     Active Substance: SOTATERCEPT-CSRK
     Dosage: UNK
     Dates: start: 2024, end: 2024
  3. REMODULIN [Suspect]
     Active Substance: TREPROSTINIL
     Indication: Pulmonary arterial hypertension
     Dosage: UNK, CONCENTRATION 10 MG/ML
     Route: 058
     Dates: start: 202105
  4. REMODULIN [Suspect]
     Active Substance: TREPROSTINIL
     Dosage: 0.070 MICROGRAM PER KILOGRAM
     Route: 058
     Dates: start: 202307
  5. REMODULIN [Suspect]
     Active Substance: TREPROSTINIL
     Dosage: 0.0705 MICROGRAM PER KILOGRAM
     Route: 058
     Dates: start: 202308
  6. OPSUMIT [Concomitant]
     Active Substance: MACITENTAN
     Dosage: UNK

REACTIONS (6)
  - Autoimmune disorder [Unknown]
  - Nasal congestion [Not Recovered/Not Resolved]
  - Mouth breathing [Unknown]
  - Epistaxis [Unknown]
  - Rash [Unknown]
  - Platelet count decreased [Unknown]

NARRATIVE: CASE EVENT DATE: 20040601
